FAERS Safety Report 6464069-5 (Version None)
Quarter: 2009Q4

REPORT INFORMATION
  Report Type: 
  Country: None (occurrence: None)
  Receive Date: 20091201
  Receipt Date: 20091118
  Transmission Date: 20100525
  Serious: Yes (Hospitalization)
  Sender: FDA-Public Use
  Company Number: ES-AMGEN-US376898

PATIENT
  Age: 4 Year
  Sex: Female

DRUGS (3)
  1. ENBREL [Suspect]
     Indication: JUVENILE ARTHRITIS
     Dosage: 0.4 MG/KG TWICE PER WEEK
     Route: 058
  2. CYCLOSPORINE [Suspect]
     Indication: JUVENILE ARTHRITIS
     Dosage: 2.5 MG/KG
     Route: 048
  3. PREDNISOLONE [Concomitant]
     Indication: JUVENILE ARTHRITIS
     Dosage: 1.5-2 MG/KG/D

REACTIONS (8)
  - AFFECT LABILITY [None]
  - CONDITION AGGRAVATED [None]
  - FAT TISSUE INCREASED [None]
  - GROWTH RETARDATION [None]
  - PNEUMONIA [None]
  - POLYARTHRITIS [None]
  - RENAL FAILURE [None]
  - RESPIRATORY FAILURE [None]
